FAERS Safety Report 4359557-1 (Version None)
Quarter: 2004Q2

REPORT INFORMATION
  Report Type: 
  Country: None (occurrence: None)
  Receive Date: 20040512
  Receipt Date: 20040427
  Transmission Date: 20050107
  Serious: Yes (Hospitalization)
  Sender: FDA-Public Use
  Company Number: FR_040404024

PATIENT
  Age: 55 Year
  Sex: Male

DRUGS (4)
  1. XIGRIS (DROTRECOGIN ALFA (ACTIVATED) [Suspect]
     Indication: SEPTIC SHOCK
     Dosage: 40 MG DAY
     Dates: start: 20031215, end: 20031219
  2. TICARPEN (TICARCILLIN DISODIUM) [Concomitant]
  3. CIPROFLOXACIN [Concomitant]
  4. DOPAMINE HYDROCHLORIDE [Concomitant]

REACTIONS (3)
  - HAEMATURIA [None]
  - NORMOCHROMIC NORMOCYTIC ANAEMIA [None]
  - SHOCK HAEMORRHAGIC [None]
